FAERS Safety Report 23948326 (Version 2)
Quarter: 2024Q2

REPORT INFORMATION
  Report Type: Report from Study
  Country: US (occurrence: US)
  Receive Date: 20240607
  Receipt Date: 20240611
  Transmission Date: 20240716
  Serious: Yes (Hospitalization)
  Sender: FDA-Public Use
  Company Number: US-ARGENX-2024-ARGX-US004009

PATIENT

DRUGS (1)
  1. VYVGART [Suspect]
     Active Substance: EFGARTIGIMOD ALFA-FCAB
     Indication: Myasthenia gravis
     Dosage: 1200 MG, 1/WEEK (400MG/20ML) FOR 4 WEEKS
     Route: 042
     Dates: start: 20230829

REACTIONS (2)
  - Hospitalisation [Not Recovered/Not Resolved]
  - Feeling abnormal [Unknown]
